FAERS Safety Report 20698200 (Version 2)
Quarter: 2022Q2

REPORT INFORMATION
  Report Type: Report from Study
  Country: US (occurrence: US)
  Receive Date: 20220412
  Receipt Date: 20220510
  Transmission Date: 20220721
  Serious: Yes (Other)
  Sender: FDA-Public Use
  Company Number: US-BRISTOL-MYERS SQUIBB COMPANY-2022-015981

PATIENT
  Age: 61 Year
  Sex: Female
  Weight: 60.3 kg

DRUGS (1)
  1. REVLIMID [Suspect]
     Active Substance: LENALIDOMIDE
     Indication: Plasma cell myeloma
     Dosage: FREQUENCY 1-21 (28 DAY CYCLE), EXPIRY DATE (30-JUN-2024) AND BATCH NUMBER (A3697A)
     Route: 048
     Dates: start: 20200807

REACTIONS (2)
  - Immunosuppression [Unknown]
  - Urinary tract infection [Unknown]

NARRATIVE: CASE EVENT DATE: 20220501
